FAERS Safety Report 8471826-2 (Version None)
Quarter: 2012Q2

REPORT INFORMATION
  Report Type: 
  Country: None (occurrence: None)
  Receive Date: 20120627
  Receipt Date: 20120618
  Transmission Date: 20120825
  Serious: Yes (Disabling, Other)
  Sender: FDA-Public Use
  Company Number: BR-ASTRAZENECA-2012SE41400

PATIENT
  Age: 86 Year
  Sex: Female
  Weight: 55 kg

DRUGS (5)
  1. CRESTOR [Suspect]
     Indication: BLOOD CHOLESTEROL INCREASED
     Route: 048
     Dates: start: 20070101, end: 20120401
  2. AMLODIPINE BESYLATE AND OLMESARTAN MEDOXOMIL [Concomitant]
     Route: 048
     Dates: start: 20100101
  3. RISPERDAL [Concomitant]
     Route: 048
     Dates: start: 20100101
  4. LAMOTRIGINE [Concomitant]
     Route: 048
     Dates: start: 20100101
  5. PONDERA [Concomitant]
     Indication: DEPRESSION
     Route: 048
     Dates: start: 20100101

REACTIONS (7)
  - PARKINSON'S DISEASE [None]
  - ANAEMIA [None]
  - MYELODYSPLASTIC SYNDROME [None]
  - ARTHRALGIA [None]
  - OFF LABEL USE [None]
  - CEREBRAL ISCHAEMIA [None]
  - DEMENTIA ALZHEIMER'S TYPE [None]
